FAERS Safety Report 10053077 (Version 2)
Quarter: 2014Q3

REPORT INFORMATION
  Report Type: Report from Study
  Country: JP (occurrence: JP)
  Receive Date: 20140402
  Receipt Date: 20140728
  Transmission Date: 20150326
  Serious: Yes (Death, Other)
  Sender: FDA-Public Use
  Company Number: JP-ASTRAZENECA-2014SE21701

PATIENT
  Age: 76 Year
  Sex: Male

DRUGS (1)
  1. SYMBICORT [Suspect]
     Active Substance: BUDESONIDE\FORMOTEROL FUMARATE DIHYDRATE
     Indication: CHRONIC OBSTRUCTIVE PULMONARY DISEASE
     Dosage: 60 DOSES, 160/4.5 MICROGRAM, TWICE A DAY
     Route: 055
     Dates: start: 20140117

REACTIONS (2)
  - Metastatic neoplasm [Unknown]
  - Pharyngeal cancer [Fatal]

NARRATIVE: CASE EVENT DATE: 201405
